FAERS Safety Report 4588219-0 (Version None)
Quarter: 2005Q1

REPORT INFORMATION
  Report Type: 
  Country: None (occurrence: None)
  Receive Date: 20050221
  Receipt Date: 20050121
  Transmission Date: 20050727
  Serious: Yes (Other)
  Sender: FDA-Public Use
  Company Number: US-ROCHE-393152

PATIENT
  Age: 53 Year
  Sex: Female
  Weight: 74.1 kg

DRUGS (5)
  1. PEGASYS [Suspect]
     Indication: HEPATITIS C
     Route: 058
     Dates: start: 20041209
  2. COPEGUS [Suspect]
     Indication: HEPATITIS C
     Route: 048
     Dates: start: 20041209
  3. LIPITOR [Concomitant]
     Route: 048
  4. ASPIRIN [Concomitant]
     Route: 048
  5. LEXAPRO [Concomitant]
     Route: 048

REACTIONS (5)
  - EYELID OEDEMA [None]
  - PRURITUS [None]
  - RASH [None]
  - TINNITUS [None]
  - VISION BLURRED [None]
